FAERS Safety Report 13066392 (Version 1)
Quarter: 2016Q4

REPORT INFORMATION
  Report Type: Spontaneous
  Country: MY (occurrence: MY)
  Receive Date: 20161227
  Receipt Date: 20161227
  Transmission Date: 20170207
  Serious: Yes (Hospitalization)
  Sender: FDA-Public Use
  Company Number: MY-PFIZER INC-2016589309

PATIENT
  Age: 30 Year
  Sex: Female

DRUGS (2)
  1. DEXTROSE. [Suspect]
     Active Substance: DEXTROSE
     Indication: ECTOPIC PREGNANCY TERMINATION
     Dosage: UNK (10 ML HYPERTONIC DEXTROSE 50%)
     Route: 050
  2. METHOTREXATE. [Suspect]
     Active Substance: METHOTREXATE
     Indication: ECTOPIC PREGNANCY TERMINATION
     Dosage: UNK
     Route: 050

REACTIONS (2)
  - Product use issue [Unknown]
  - Vaginal haemorrhage [Recovered/Resolved]
